FAERS Safety Report 25352721 (Version 1)
Quarter: 2025Q2

REPORT INFORMATION
  Report Type: Spontaneous
  Country: US (occurrence: None)
  Receive Date: 20250523
  Receipt Date: 20250523
  Transmission Date: 20250717
  Serious: Yes (Other)
  Sender: FDA-CTU
  Company Number: None

PATIENT
  Age: 61 Year
  Sex: Male
  Weight: 74.25 kg

DRUGS (2)
  1. ZYRTEC [Suspect]
     Active Substance: CETIRIZINE HYDROCHLORIDE
     Indication: Multiple allergies
     Route: 048
     Dates: start: 20140501, end: 20250101
  2. LISINOPRIL [Concomitant]
     Active Substance: LISINOPRIL

REACTIONS (5)
  - Pruritus [None]
  - Pruritus [None]
  - Urticaria [None]
  - Therapy interrupted [None]
  - Withdrawal syndrome [None]

NARRATIVE: CASE EVENT DATE: 20240515
